FAERS Safety Report 5047295-1 (Version None)
Quarter: 2006Q3

REPORT INFORMATION
  Report Type: 
  Country: None (occurrence: None)
  Receive Date: 20060711
  Receipt Date: 20060629
  Transmission Date: 20061208
  Serious: Yes (Hospitalization)
  Sender: FDA-Public Use
  Company Number: 2006PK01460

PATIENT
  Age: 35 Year
  Sex: Female
  Weight: 79 kg

DRUGS (3)
  1. SEROQUEL [Suspect]
     Indication: DEPRESSION
     Route: 048
     Dates: start: 20050503, end: 20060524
  2. EXJADE [Suspect]
     Indication: IRON METABOLISM DISORDER
     Route: 048
     Dates: start: 20060405, end: 20060524
  3. ESCITALOPRAM OXALATE [Suspect]
     Indication: DEPRESSION
     Route: 048
     Dates: start: 20040101, end: 20060524

REACTIONS (5)
  - ABDOMINAL PAIN [None]
  - HEPATITIS [None]
  - HEPATOCELLULAR DAMAGE [None]
  - JAUNDICE [None]
  - NAUSEA [None]
